FAERS Safety Report 8953600 (Version 3)
Quarter: 2020Q3

REPORT INFORMATION
  Report Type: Report from Study
  Country: FR (occurrence: FR)
  Receive Date: 20121206
  Receipt Date: 20130506
  Transmission Date: 20201104
  Serious: Yes (Other)
  Sender: FDA-Public Use
  Company Number: FR-PFIZER INC-2012303171

PATIENT
  Age: 71 Year
  Sex: Female
  Weight: 75 kg

DRUGS (12)
  1. GDC?0575. [Suspect]
     Active Substance: GDC-0575
     Indication: NEOPLASM
     Dosage: 60 MG, UNK
     Route: 048
     Dates: start: 20121009, end: 20121018
  2. LYSANXIA [Concomitant]
     Active Substance: PRAZEPAM
     Indication: DEPRESSION
     Dosage: 10 MG/DAY
     Route: 048
     Dates: start: 201010
  3. PAROXETINE. [Concomitant]
     Active Substance: PAROXETINE
     Indication: DEPRESSION
     Dosage: 20 MG/DAY
     Route: 048
     Dates: start: 20101010
  4. PRAVASTATIN SODIUM. [Concomitant]
     Active Substance: PRAVASTATIN SODIUM
     Dosage: 20 MG/DAY
     Route: 048
     Dates: start: 201009
  5. PARIET [Concomitant]
     Active Substance: RABEPRAZOLE SODIUM
     Dosage: 10 MG/DAY
     Route: 048
     Dates: start: 201010
  6. LYRICA [Suspect]
     Active Substance: PREGABALIN
     Indication: PAIN
     Dosage: UNK
     Route: 048
     Dates: start: 20121016, end: 20121030
  7. LYSANXIA [Concomitant]
     Active Substance: PRAZEPAM
     Indication: PROPHYLAXIS
     Dosage: 10 MG/DAY
     Route: 048
     Dates: start: 201208
  8. PRAVASTATIN SODIUM. [Concomitant]
     Active Substance: PRAVASTATIN SODIUM
     Indication: HYPERCHOLESTEROLAEMIA
     Dosage: 20 MG/DAY
     Route: 048
     Dates: start: 201205
  9. OXYCONTIN [Concomitant]
     Active Substance: OXYCODONE HYDROCHLORIDE
     Indication: NEURALGIA
     Dosage: 50 MG, UNK
     Route: 048
     Dates: start: 201206
  10. VERSATIS [Concomitant]
     Active Substance: LIDOCAINE
     Indication: PAIN
     Dosage: UNK
     Route: 058
     Dates: start: 20120625
  11. PARACETAMOL [Concomitant]
     Active Substance: ACETAMINOPHEN
     Indication: PAIN
     Dosage: 1 G/DAY
     Route: 048
     Dates: start: 20121008
  12. PAROXETINE. [Concomitant]
     Active Substance: PAROXETINE
     Indication: PROPHYLAXIS
     Dosage: 20 MG/DAY
     Route: 048
     Dates: start: 20120810

REACTIONS (1)
  - Neutropenia [Recovered/Resolved]

NARRATIVE: CASE EVENT DATE: 20121023
